FAERS Safety Report 4466012-7 (Version None)
Quarter: 2004Q3

REPORT INFORMATION
  Report Type: 
  Country: None (occurrence: None)
  Receive Date: 20040930
  Receipt Date: 20040930
  Transmission Date: 20050211
  Serious: Yes (Other)
  Sender: FDA-Public Use
  Company Number: None

PATIENT
  Age: 64 Year
  Sex: Male
  Weight: 81.6475 kg

DRUGS (1)
  1. CIALIS [Suspect]

REACTIONS (4)
  - BACK PAIN [None]
  - NASAL SINUS DRAINAGE [None]
  - PAIN IN EXTREMITY [None]
  - SINUS DISORDER [None]
